FAERS Safety Report 22519551 (Version 1)
Quarter: 2023Q2

REPORT INFORMATION
  Report Type: Spontaneous
  Country: JP (occurrence: JP)
  Receive Date: 20230605
  Receipt Date: 20230605
  Transmission Date: 20230721
  Serious: Yes (Hospitalization, Other)
  Sender: FDA-Public Use
  Company Number: JP-TAKEDA-2023TJP006791

PATIENT
  Age: 74 Year
  Sex: Male

DRUGS (1)
  1. ADCETRIS [Suspect]
     Active Substance: BRENTUXIMAB VEDOTIN
     Indication: Peripheral T-cell lymphoma unspecified
     Dosage: 1.8 MILLIGRAM/KILOGRAM, Q3WEEKS
     Route: 041
     Dates: start: 20230512

REACTIONS (1)
  - Gastric ulcer haemorrhage [Recovered/Resolved]

NARRATIVE: CASE EVENT DATE: 20230517
